FAERS Safety Report 9293982 (Version 1)
Quarter: 2013Q1

REPORT INFORMATION
  Report Type: Spontaneous
  Country: US (occurrence: None)
  Receive Date: 20121221
  Receipt Date: 20121221
  Transmission Date: 20140127
  Serious: Yes (Hospitalization)
  Sender: FDA-Public Use
  Company Number: PHEH2011US008700

PATIENT
  Age: 19 Year
  Sex: Male

DRUGS (2)
  1. RITALIN LA (METHYLPHENIDATE HYDROCHLORIDE) EXTENDED RELEASE CAPSULES [Suspect]
     Route: 048
     Dates: end: 201108
  2. METHYLPHENIDATE HYDROCHLORIDE [Suspect]
     Route: 048

REACTIONS (1)
  - Depression suicidal [None]
